FAERS Safety Report 10584139 (Version 2)
Quarter: 2014Q4

REPORT INFORMATION
  Report Type: Spontaneous
  Country: FR (occurrence: FR)
  Receive Date: 20141114
  Receipt Date: 20141217
  Transmission Date: 20150529
  Serious: Yes (Other)
  Sender: FDA-Public Use
  Company Number: FR-JNJFOC-20141107466

PATIENT
  Age: 57 Year
  Sex: Male

DRUGS (8)
  1. ALLOPURINOL. [Concomitant]
     Active Substance: ALLOPURINOL
     Dosage: FOR 10 YEARS
     Route: 065
  2. NISIS [Concomitant]
     Active Substance: VALSARTAN
     Dosage: FOR 10 YEARS
     Route: 065
  3. SIMPONI [Suspect]
     Active Substance: GOLIMUMAB
     Indication: ANKYLOSING SPONDYLITIS
     Route: 058
     Dates: start: 201311, end: 201410
  4. DIAMICRON [Concomitant]
     Active Substance: GLICLAZIDE
     Dosage: FOR 10 YEARS
     Route: 065
  5. SIMPONI [Suspect]
     Active Substance: GOLIMUMAB
     Indication: ANKYLOSING SPONDYLITIS
     Route: 058
     Dates: start: 20140815
  6. METOJECT [Concomitant]
     Active Substance: METHOTREXATE SODIUM
     Dosage: A FEW YEARS
     Route: 065
  7. METFORMINE [Concomitant]
     Active Substance: METFORMIN HYDROCHLORIDE
     Dosage: FOR 10 YEARS
     Route: 065
  8. SIMVASTATINE [Concomitant]
     Active Substance: SIMVASTATIN
     Dosage: FOR 10 YEARS
     Route: 065

REACTIONS (3)
  - Mouth ulceration [Recovered/Resolved]
  - Genital ulceration [Recovered/Resolved]
  - Erythema multiforme [Recovered/Resolved]

NARRATIVE: CASE EVENT DATE: 20140817
